FAERS Safety Report 9453177 (Version 2)
Quarter: 2013Q3

REPORT INFORMATION
  Report Type: Spontaneous
  Country: BR (occurrence: BR)
  Receive Date: 20130812
  Receipt Date: 20130909
  Transmission Date: 20140515
  Serious: Yes (Other)
  Sender: FDA-Public Use
  Company Number: BR-NOVOPROD-384649

PATIENT
  Age: 70 Year
  Sex: Female
  Weight: 86 kg

DRUGS (9)
  1. VICTOZA [Suspect]
     Indication: TYPE 2 DIABETES MELLITUS
     Dosage: 0.6 MG, QD
     Route: 058
     Dates: start: 20110829, end: 201202
  2. VICTOZA [Suspect]
     Dosage: UNK
     Route: 058
     Dates: start: 201308
  3. NOVOMIX 30 FLEXPEN [Concomitant]
     Indication: TYPE 2 DIABETES MELLITUS
     Dosage: 108 IU, QD
     Route: 058
     Dates: start: 200707
  4. PANTOPRAZOLE [Concomitant]
     Dosage: 40 MG, QD (TABLET)
     Route: 048
  5. JANUMET [Concomitant]
     Indication: TYPE 2 DIABETES MELLITUS
     Dosage: 2 TAB, QD (JANUMET 50/350)
     Route: 048
  6. CARDIZEM                           /00489701/ [Concomitant]
     Dosage: 30 MG, QD (TABLET)
     Route: 048
  7. LIPIDIL [Concomitant]
     Indication: BLOOD TRIGLYCERIDES ABNORMAL
     Dosage: 1 TAB, QD
     Route: 048
  8. EUTIROX [Concomitant]
     Indication: HYPOTHYROIDISM
     Dosage: 1 TAB, QD
     Route: 048
  9. MOTILIUM                           /00498201/ [Concomitant]
     Dosage: 3 TAB, QD
     Route: 048

REACTIONS (1)
  - Melaena [Recovered/Resolved]
